FAERS Safety Report 5113356-1 (Version None)
Quarter: 2006Q3

REPORT INFORMATION
  Report Type: 
  Country: None (occurrence: None)
  Receive Date: 20060920
  Receipt Date: 20060822
  Transmission Date: 20061208
  Serious: Yes (Hospitalization)
  Sender: FDA-Public Use
  Company Number: 06-0001-ECT

PATIENT
  Age: 8 Year
  Sex: Female

DRUGS (4)
  1. EXTENDRYL CHEWABLE TABLETS [Suspect]
     Indication: HYPERSENSITIVITY
     Dosage: 1 TABLET BID, 047
     Dates: start: 20060624, end: 20060818
  2. SINGULAIR [Concomitant]
  3. FLONASE [Concomitant]
  4. ALBUTEROL [Concomitant]

REACTIONS (6)
  - ABDOMINAL PAIN UPPER [None]
  - CONSTIPATION [None]
  - DIZZINESS [None]
  - HEADACHE [None]
  - MOBILITY DECREASED [None]
  - VOMITING [None]
